FAERS Safety Report 6788825-9 (Version None)
Quarter: 2010Q2

REPORT INFORMATION
  Report Type: 
  Country: None (occurrence: None)
  Receive Date: 20100623
  Receipt Date: 20080707
  Transmission Date: 20101027
  Serious: No
  Sender: FDA-Public Use
  Company Number: US-PFIZER INC-2008042984

PATIENT
  Sex: Female

DRUGS (2)
  1. AROMASIN [Suspect]
     Dates: start: 20050101
  2. ALPRAZOLAM [Suspect]
     Indication: ANXIETY

REACTIONS (4)
  - ARTHRALGIA [None]
  - HEART RATE INCREASED [None]
  - JOINT STIFFNESS [None]
  - JOINT SWELLING [None]
